FAERS Safety Report 19502316 (Version 5)
Quarter: 2021Q3

REPORT INFORMATION
  Report Type: Report from Study
  Country: DE (occurrence: DE)
  Receive Date: 20210707
  Receipt Date: 20210924
  Transmission Date: 20211014
  Serious: Yes (Hospitalization, Other)
  Sender: FDA-Public Use
  Company Number: NVSC2021DE144720

PATIENT
  Age: 50 Year
  Sex: Female
  Weight: 60 kg

DRUGS (7)
  1. BYL719 [Suspect]
     Active Substance: ALPELISIB
     Indication: BREAST CANCER
     Dosage: 150 MG, BID
     Route: 065
     Dates: start: 20200727, end: 20200921
  2. XGEVA [Concomitant]
     Active Substance: DENOSUMAB
     Indication: PRODUCT USED FOR UNKNOWN INDICATION
     Dosage: UNK, QMO
     Route: 058
  3. FASLODEX [Concomitant]
     Active Substance: FULVESTRANT
     Indication: PRODUCT USED FOR UNKNOWN INDICATION
     Dosage: UNK, QMO
     Route: 058
  4. TORASEMID [Concomitant]
     Active Substance: TORSEMIDE
     Indication: HYPERTENSION
     Dosage: 5 MG (1?0?0)
     Route: 065
  5. CALCIMAGON D3 [Concomitant]
     Active Substance: CALCIUM\CHOLECALCIFEROL
     Indication: PRODUCT USED FOR UNKNOWN INDICATION
     Dosage: 500 MG, 400 IE (1?0?0)
     Route: 065
  6. DAFIRO HCT [Suspect]
     Active Substance: AMLODIPINE\HYDROCHLOROTHIAZIDE\VALSARTAN
     Indication: HYPERTENSION
     Dosage: 160/10/25 (1?0?0)
     Route: 048
     Dates: start: 20180101, end: 20200922
  7. TORASEMID [Concomitant]
     Active Substance: TORSEMIDE
     Indication: HYPERTENSION

REACTIONS (20)
  - Abdominal wall oedema [Unknown]
  - Acute kidney injury [Recovering/Resolving]
  - Cholestasis [Unknown]
  - Hyperglycaemia [Unknown]
  - Visual impairment [Unknown]
  - Dehydration [Recovering/Resolving]
  - Hepatic failure [Not Recovered/Not Resolved]
  - Fatigue [Unknown]
  - Hypotension [Unknown]
  - Hepatomegaly [Not Recovered/Not Resolved]
  - Pollakiuria [Unknown]
  - Metastases to liver [Not Recovered/Not Resolved]
  - Hyponatraemia [Unknown]
  - Oedema peripheral [Unknown]
  - Transaminases increased [Unknown]
  - Diabetes mellitus [Recovering/Resolving]
  - Thirst [Unknown]
  - Weight decreased [Unknown]
  - Muscle spasms [Recovered/Resolved]
  - Blood bilirubin increased [Unknown]

NARRATIVE: CASE EVENT DATE: 202007
